FAERS Safety Report 21611554 (Version 3)
Quarter: 2024Q2

REPORT INFORMATION
  Report Type: Report from Study
  Country: US (occurrence: US)
  Receive Date: 20221117
  Receipt Date: 20240511
  Transmission Date: 20240716
  Serious: Yes (Other)
  Sender: FDA-Public Use
  Company Number: US-ABBVIE-4204393

PATIENT
  Sex: Female

DRUGS (1)
  1. HUMIRA [Suspect]
     Active Substance: ADALIMUMAB
     Indication: Crohn^s disease
     Dosage: CITRATE FREE
     Route: 058
     Dates: start: 20150415

REACTIONS (3)
  - Small intestinal obstruction [Recovered/Resolved]
  - Procedural complication [Recovered/Resolved]
  - Rapid eye movement sleep behaviour disorder [Not Recovered/Not Resolved]

NARRATIVE: CASE EVENT DATE: 20150101
